FAERS Safety Report 10096444 (Version 2)
Quarter: 2014Q2

REPORT INFORMATION
  Report Type: Spontaneous
  Country: US (occurrence: US)
  Receive Date: 20140422
  Receipt Date: 20140422
  Transmission Date: 20141212
  Serious: No
  Sender: FDA-Public Use
  Company Number: US-GILEAD-2012-0063697

PATIENT
  Age: 51 Year
  Sex: Female

DRUGS (3)
  1. LETAIRIS [Suspect]
     Indication: PRODUCT USED FOR UNKNOWN INDICATION
     Dosage: 10 MG, UNK
     Route: 048
     Dates: start: 20120821, end: 20121022
  2. LETAIRIS [Suspect]
     Dosage: 10 MG, UNK
     Route: 048
  3. NIFEDIPINE XL [Suspect]

REACTIONS (1)
  - Dizziness [Recovered/Resolved]
